FAERS Safety Report 11308604 (Version 17)
Quarter: 2018Q2

REPORT INFORMATION
  Report Type: Report from Study
  Country: CA (occurrence: CA)
  Receive Date: 20150724
  Receipt Date: 20180620
  Transmission Date: 20180711
  Serious: Yes (Hospitalization, Other)
  Sender: FDA-Public Use
  Company Number: PHHY2015CA083858

PATIENT
  Age: 74 Year
  Sex: Male

DRUGS (3)
  1. SANDOSTATIN [Suspect]
     Active Substance: OCTREOTIDE ACETATE
     Indication: ANGIODYSPLASIA
     Dosage: TID
     Route: 058
     Dates: start: 2015
  2. BISOPROLOL [Concomitant]
     Active Substance: BISOPROLOL
     Indication: PRODUCT USED FOR UNKNOWN INDICATION
     Dosage: 5 MG, QD
     Route: 065
  3. SANDOSTATIN LAR DEPOT [Suspect]
     Active Substance: OCTREOTIDE ACETATE
     Indication: ANGIODYSPLASIA
     Dosage: 20 MG, QMO
     Route: 030
     Dates: start: 20150609

REACTIONS (27)
  - Cerebrovascular accident [Unknown]
  - Haemoglobin decreased [Unknown]
  - Cough [Unknown]
  - Productive cough [Unknown]
  - Nasopharyngitis [Unknown]
  - Dyspnoea [Unknown]
  - Heart rate decreased [Unknown]
  - Eye inflammation [Unknown]
  - Injection site pain [Unknown]
  - Nausea [Unknown]
  - Gout [Unknown]
  - Pulmonary mass [Unknown]
  - Peripheral swelling [Unknown]
  - Epistaxis [Unknown]
  - Sinus congestion [Unknown]
  - Fatigue [Unknown]
  - Product use in unapproved indication [Unknown]
  - White blood cell count decreased [Unknown]
  - Hypotension [Unknown]
  - Eye contusion [Unknown]
  - Dizziness [Unknown]
  - Loss of consciousness [Unknown]
  - Weight decreased [Unknown]
  - Bradycardia [Unknown]
  - Blood pressure systolic decreased [Unknown]
  - Abdominal pain [Unknown]
  - Blood pressure diastolic decreased [Unknown]

NARRATIVE: CASE EVENT DATE: 2015
